FAERS Safety Report 19941555 (Version 3)
Quarter: 2021Q4

REPORT INFORMATION
  Report Type: Spontaneous
  Country: CH (occurrence: CH)
  Receive Date: 20211011
  Receipt Date: 20211018
  Transmission Date: 20220303
  Serious: Yes (Hospitalization, Other)
  Sender: FDA-Public Use
  Company Number: CH-MYLANLABS-2021M1069812

PATIENT
  Age: 26 Year
  Sex: Male
  Weight: 77 kg

DRUGS (8)
  1. IBUPROFEN [Suspect]
     Active Substance: IBUPROFEN
     Indication: Nasopharyngitis
     Dosage: UNK
  2. IBUPROFEN [Suspect]
     Active Substance: IBUPROFEN
     Indication: Oropharyngeal pain
  3. IBUPROFEN [Suspect]
     Active Substance: IBUPROFEN
     Indication: Nausea
  4. IBUPROFEN [Suspect]
     Active Substance: IBUPROFEN
     Indication: Headache
  5. ACETAMINOPHEN [Suspect]
     Active Substance: ACETAMINOPHEN
     Indication: Headache
     Dosage: UNK
  6. ACETAMINOPHEN [Suspect]
     Active Substance: ACETAMINOPHEN
     Indication: Nasopharyngitis
  7. ACETAMINOPHEN [Suspect]
     Active Substance: ACETAMINOPHEN
     Indication: Nausea
  8. ACETAMINOPHEN [Suspect]
     Active Substance: ACETAMINOPHEN
     Indication: Oropharyngeal pain

REACTIONS (5)
  - Drug ineffective [Recovered/Resolved]
  - Thrombocytopenia [Unknown]
  - Blood pressure increased [Unknown]
  - Heart rate increased [Unknown]
  - Lymphopenia [Unknown]
